FAERS Safety Report 10011391 (Version 2)
Quarter: 2014Q1

REPORT INFORMATION
  Report Type: Spontaneous
  Country: GB (occurrence: GB)
  Receive Date: 20140314
  Receipt Date: 20140314
  Transmission Date: 20141002
  Serious: Yes (Other)
  Sender: FDA-Public Use
  Company Number: GB-BAXTER-2014BAX009509

PATIENT
  Age: 66 Year
  Sex: Female

DRUGS (7)
  1. SODIUM CHLORIDE 0.9% INTRAVENOUS INFUSION BP [Suspect]
     Indication: RHEUMATIC DISORDER
     Route: 042
     Dates: start: 20140204, end: 20140204
  2. SODIUM CHLORIDE 0.9% INTRAVENOUS INFUSION BP [Suspect]
     Indication: MEDICATION DILUTION
  3. RITUXIMAB [Suspect]
     Indication: RHEUMATIC DISORDER
     Route: 042
     Dates: start: 20140204, end: 20140204
  4. RITUXIMAB [Suspect]
     Dosage: DOSE REDUCED
     Dates: start: 2014
  5. PARACETAMOL [Concomitant]
     Indication: PREMEDICATION
     Route: 048
     Dates: start: 20140204
  6. HYDROCORTISONE [Concomitant]
     Indication: PREMEDICATION
     Route: 042
     Dates: start: 20140204
  7. CHLORPHENAMINE [Concomitant]
     Indication: PREMEDICATION
     Route: 042
     Dates: start: 20140204

REACTIONS (5)
  - Throat irritation [Recovered/Resolved]
  - Paraesthesia [Recovered/Resolved]
  - Throat irritation [Recovered/Resolved]
  - Oral discomfort [Recovered/Resolved]
  - Malaise [Recovered/Resolved]
